FAERS Safety Report 5757758-9 (Version None)
Quarter: 2008Q2

REPORT INFORMATION
  Report Type: 
  Country: None (occurrence: None)
  Receive Date: 20080529
  Receipt Date: 20080516
  Transmission Date: 20081010
  Serious: Yes (Other)
  Sender: FDA-Public Use
  Company Number: 001#1#2008-00054

PATIENT
  Age: 65 Year
  Sex: Female

DRUGS (6)
  1. ALPROSTADIL [Suspect]
     Indication: SKIN ULCER
     Dosage: 3 DF; 1 DF
     Dates: start: 20080108, end: 20080128
  2. ALPROSTADIL [Suspect]
     Indication: SKIN ULCER
     Dosage: 3 DF; 1 DF
     Dates: start: 20080129, end: 20080201
  3. SODIUM CHLORIDE [Suspect]
     Indication: SKIN ULCER
     Dosage: 250 ML
     Dates: start: 20080108, end: 20080128
  4. SODIUM CHLORIDE [Suspect]
     Indication: VASCULITIS
     Dosage: 250 ML
     Dates: start: 20080108, end: 20080128
  5. SODIUM CHLORIDE [Suspect]
     Indication: SKIN ULCER
     Dosage: 250 ML
     Dates: start: 20080129, end: 20080201
  6. SODIUM CHLORIDE [Suspect]
     Indication: VASCULITIS
     Dosage: 250 ML
     Dates: start: 20080129, end: 20080201

REACTIONS (1)
  - FALL [None]
